FAERS Safety Report 19131457 (Version 1)
Quarter: 2021Q2

REPORT INFORMATION
  Report Type: Spontaneous
  Country: AT (occurrence: AT)
  Receive Date: 20210413
  Receipt Date: 20210413
  Transmission Date: 20210717
  Serious: Yes (Other)
  Sender: FDA-Public Use
  Company Number: AT-PFIZER INC-2021363707

PATIENT
  Age: 22 Year
  Sex: Female
  Weight: 79 kg

DRUGS (10)
  1. LEPONEX [Suspect]
     Active Substance: CLOZAPINE
     Dosage: 100 MG
     Dates: start: 2017, end: 20200806
  2. LEPONEX [Suspect]
     Active Substance: CLOZAPINE
     Dosage: 200 MG
     Dates: start: 20200902
  3. HALDOL [Suspect]
     Active Substance: HALOPERIDOL
     Dosage: 10 MG
     Dates: start: 20200817
  4. QUILONORM [LITHIUM ACETATE] [Suspect]
     Active Substance: LITHIUM ACETATE
     Dosage: 675 MG
     Dates: start: 20200831, end: 20200907
  5. LEPONEX [Suspect]
     Active Substance: CLOZAPINE
     Dosage: 200 MG
     Dates: start: 20200807, end: 20200812
  6. LEPONEX [Suspect]
     Active Substance: CLOZAPINE
     Dosage: 300 MG
     Dates: start: 20200821, end: 20200901
  7. TEMESTA [LORAZEPAM] [Suspect]
     Active Substance: LORAZEPAM
     Dosage: 7.5 MG
     Dates: start: 20200820, end: 20200902
  8. QUILONORM [LITHIUM ACETATE] [Suspect]
     Active Substance: LITHIUM ACETATE
     Dosage: 450 MG
     Dates: start: 20200908
  9. LEPONEX [Suspect]
     Active Substance: CLOZAPINE
     Dosage: 400 MG
     Dates: start: 20200813, end: 20200820
  10. QUILONORM [LITHIUM ACETATE] [Suspect]
     Active Substance: LITHIUM ACETATE
     Dosage: 450 MG
     Dates: start: 20200827, end: 20200830

REACTIONS (2)
  - Electroencephalogram abnormal [Unknown]
  - Myoclonus [Recovering/Resolving]

NARRATIVE: CASE EVENT DATE: 202009
